FAERS Safety Report 5383690-9 (Version None)
Quarter: 2007Q3

REPORT INFORMATION
  Report Type: 
  Country: None (occurrence: None)
  Receive Date: 20070710
  Receipt Date: 20070626
  Transmission Date: 20080115
  Serious: Yes (Hospitalization)
  Sender: FDA-Public Use
  Company Number: JP-ELI_LILLY_AND_COMPANY-JP200706006202

PATIENT
  Age: 38 Year
  Sex: Female
  Weight: 51 kg

DRUGS (19)
  1. TADALAFIL [Suspect]
     Indication: PULMONARY HYPERTENSION
     Dosage: 20 MG, DAILY (1/D)
     Route: 048
     Dates: start: 20070409, end: 20070424
  2. TADALAFIL [Suspect]
     Dates: start: 20070427, end: 20070524
  3. TADALAFIL [Suspect]
     Dates: start: 20070528, end: 20070624
  4. TRACLEER [Concomitant]
     Indication: PULMONARY HYPERTENSION
     Dosage: 250 MG, DAILY (1/D)
     Route: 048
     Dates: start: 20060911
  5. DORNER [Concomitant]
     Indication: PULMONARY HYPERTENSION
     Dosage: 80 UG, DAILY (1/D)
     Route: 048
     Dates: start: 20060330, end: 20070627
  6. DORNER [Concomitant]
     Dosage: 80 UG, DAILY (1/D)
     Route: 048
     Dates: start: 20070628
  7. WARFARIN SODIUM [Concomitant]
     Indication: PULMONARY HYPERTENSION
     Dosage: 6 MG, DAILY (1/D)
     Route: 048
     Dates: start: 20061024, end: 20070627
  8. WARFARIN SODIUM [Concomitant]
     Dosage: 6 MG, DAILY (1/D)
     Route: 048
     Dates: start: 20070628
  9. FERROUS SODIUM CITRATE [Concomitant]
     Indication: IRON DEFICIENCY ANAEMIA
     Dosage: 100 MG, DAILY (1/D)
     Route: 048
     Dates: start: 20070404
  10. LOXONIN [Concomitant]
     Dosage: UNK, DAILY (1/D)
     Route: 048
     Dates: start: 20070414, end: 20070415
  11. LOXONIN [Concomitant]
     Dosage: UNK, DAILY (1/D)
     Route: 048
     Dates: start: 20070502, end: 20070502
  12. LOXOPROFEN [Concomitant]
     Indication: MYALGIA
     Dosage: 60 MG, DAILY (1/D)
     Route: 048
     Dates: start: 20070420
  13. CLARITHROMYCIN [Concomitant]
     Dosage: UNK, DAILY (1/D)
     Route: 048
     Dates: start: 20070428, end: 20070429
  14. SOLMALT [Concomitant]
     Dosage: UNK, UNKNOWN
     Route: 042
     Dates: start: 20070428, end: 20070428
  15. LOXONIN [Concomitant]
     Indication: MYALGIA
     Dosage: UNK, UNKNOWN
     Route: 062
     Dates: start: 20070502
  16. ZITHROMAC [Concomitant]
     Dosage: UNK, DAILY (1/D)
     Route: 048
     Dates: start: 20070502, end: 20070503
  17. ASTOMIN [Concomitant]
     Indication: COUGH
     Dosage: UNK, UNKNOWN
     Route: 048
     Dates: start: 20070507, end: 20070510
  18. BROCIN-CODEINE [Concomitant]
     Indication: COUGH
     Dosage: 2 ML, DAILY (1/D)
     Route: 048
     Dates: start: 20070509
  19. FESIN [Concomitant]
     Dosage: UNK, UNKNOWN
     Route: 042
     Dates: start: 20070509

REACTIONS (1)
  - MENORRHAGIA [None]
